FAERS Safety Report 9641944 (Version 1)
Quarter: 2013Q4

REPORT INFORMATION
  Report Type: Spontaneous
  Country: DE (occurrence: None)
  Receive Date: 20131022
  Receipt Date: 20131022
  Transmission Date: 20140711
  Serious: Yes (Other)
  Sender: FDA-Public Use
  Company Number: 1310-1296

PATIENT
  Age: 67 Year
  Sex: Male

DRUGS (3)
  1. EYLEA [Suspect]
     Indication: AGE-RELATED MACULAR DEGENERATION
     Dosage: 4 INJECTIONS RIGHT EYE
     Route: 031
     Dates: start: 201303
  2. CARTIA (ACETYLSALICYLIC ACID) [Concomitant]
  3. KARVEZIDE (KARVEA HCT) [Concomitant]

REACTIONS (3)
  - Vitrectomy [None]
  - Vision blurred [None]
  - Eye haemorrhage [None]
